FAERS Safety Report 6554044-4 (Version None)
Quarter: 2010Q1

REPORT INFORMATION
  Report Type: 
  Country: None (occurrence: None)
  Receive Date: 20100127
  Receipt Date: 20100120
  Transmission Date: 20100710
  Serious: Yes (Death, Life-Threatening, Hospitalization)
  Sender: FDA-Public Use
  Company Number: GB-TEVA-174880ISR

PATIENT
  Age: 61 Year
  Sex: Female
  Weight: 100 kg

DRUGS (2)
  1. CLOMIPRAMINE [Suspect]
     Indication: DEPRESSION
     Route: 048
     Dates: end: 20060920
  2. METHYLTHIONINIUM CHLORIDE [Interacting]
     Indication: PARATHYROID TUMOUR
     Route: 042
     Dates: start: 20060920, end: 20060920

REACTIONS (10)
  - CEREBRAL DISORDER [None]
  - CLONUS [None]
  - CONVULSION [None]
  - DIABETES INSIPIDUS [None]
  - DRUG INTERACTION [None]
  - HYPERTONIA [None]
  - HYPOTENSION [None]
  - LOSS OF CONSCIOUSNESS [None]
  - MULTI-ORGAN FAILURE [None]
  - SEROTONIN SYNDROME [None]
